FAERS Safety Report 23638811 (Version 1)
Quarter: 2024Q1

REPORT INFORMATION
  Report Type: Report from Study
  Country: CA (occurrence: CA)
  Receive Date: 20240315
  Receipt Date: 20240315
  Transmission Date: 20240409
  Serious: Yes (Hospitalization, Other)
  Sender: FDA-Public Use
  Company Number: CA-HLS-202302861

PATIENT
  Age: 17 Year
  Sex: Female

DRUGS (13)
  1. CLOZARIL [Suspect]
     Active Substance: CLOZAPINE
     Indication: Schizoaffective disorder bipolar type
     Dosage: 300  MG
     Route: 048
     Dates: start: 20230525
  2. BENZTROPINE [Suspect]
     Active Substance: BENZTROPINE
     Indication: Extrapyramidal disorder
     Dosage: 1 MG BEDTIME WHEN NEEDED FOR SIALORRHEA
     Route: 065
  3. BENZTROPINE [Suspect]
     Active Substance: BENZTROPINE
     Indication: Salivary hypersecretion
     Dosage: 1 MG BEDTIME WHEN NEEDED FOR SIALORRHEA
     Route: 065
  4. LITHIUM CARBONATE [Suspect]
     Active Substance: LITHIUM CARBONATE
     Indication: Product used for unknown indication
     Dosage: 150 MG MORNING AND EVENING
     Route: 065
  5. ABILIFY [Suspect]
     Active Substance: ARIPIPRAZOLE
     Indication: Product used for unknown indication
     Dosage: 15 MG ONCE DAILY
     Route: 065
  6. SAXENDA [Concomitant]
     Active Substance: LIRAGLUTIDE
     Indication: Product used for unknown indication
     Route: 058
  7. BISOPROLOL [Concomitant]
     Active Substance: BISOPROLOL\BISOPROLOL FUMARATE
     Indication: Product used for unknown indication
     Dosage: 5 MG ONCE DAILY
     Route: 065
  8. FLUPENTIXOL [Concomitant]
     Active Substance: FLUPENTIXOL
     Indication: Product used for unknown indication
     Route: 065
  9. MELATONIN [Concomitant]
     Active Substance: MELATONIN
     Indication: Sleep disorder
     Route: 065
  10. ATROPINE OPHTHALMIC [Concomitant]
     Indication: Product used for unknown indication
     Dosage: 1 DROP SUBLINGUAL AT BEDTIME
     Route: 065
  11. OLANZAPINE [Concomitant]
     Active Substance: OLANZAPINE
     Indication: Psychotic disorder
     Dosage: WHEN NEEDED FOR PSYCHOSIS
     Route: 065
  12. PROPRANOLOL [Concomitant]
     Active Substance: PROPRANOLOL HYDROCHLORIDE
     Indication: Akathisia
     Route: 065
  13. PROPRANOLOL [Concomitant]
     Active Substance: PROPRANOLOL HYDROCHLORIDE
     Indication: Restlessness
     Route: 065

REACTIONS (14)
  - Dizziness [Unknown]
  - Salivary hypersecretion [Unknown]
  - Ischaemia [Unknown]
  - Paranoia [Unknown]
  - Left atrial enlargement [Unknown]
  - Off label use [Unknown]
  - Off label use [Unknown]
  - Orthostatic hypotension [Unknown]
  - Electrocardiogram QT prolonged [Recovered/Resolved]
  - Seizure [Unknown]
  - Psychotic disorder [Unknown]
  - Sinus arrhythmia [Unknown]
  - Tachycardia [Recovered/Resolved]
  - Tremor [Unknown]

NARRATIVE: CASE EVENT DATE: 20230815
